FAERS Safety Report 19877426 (Version 1)
Quarter: 2021Q3

REPORT INFORMATION
  Report Type: Spontaneous
  Country: US (occurrence: US)
  Receive Date: 20210924
  Receipt Date: 20210924
  Transmission Date: 20211014
  Serious: No
  Sender: FDA-Public Use
  Company Number: US-ALLERGAN-2039910US

PATIENT
  Age: 50 Year
  Sex: Male

DRUGS (3)
  1. CARAFATE [Suspect]
     Active Substance: SUCRALFATE
     Indication: OESOPHAGITIS
     Dosage: 10 ML, BID
     Route: 048
     Dates: start: 202009, end: 20201025
  2. NYSTATIN. [Concomitant]
     Active Substance: NYSTATIN
  3. CARAFATE GENERIC [Concomitant]
     Active Substance: SUCRALFATE
     Indication: OESOPHAGITIS

REACTIONS (4)
  - Wrong technique in product usage process [Unknown]
  - Therapeutic product effect delayed [Unknown]
  - Intentional underdose [Unknown]
  - Product container issue [Unknown]
